FAERS Safety Report 14054999 (Version 2)
Quarter: 2017Q4

REPORT INFORMATION
  Report Type: Spontaneous
  Country: US (occurrence: US)
  Receive Date: 20171006
  Receipt Date: 20171128
  Transmission Date: 20180321
  Serious: No
  Sender: FDA-Public Use
  Company Number: US-JNJFOC-20170800565

PATIENT
  Age: 75 Year
  Sex: Female
  Weight: 65.77 kg

DRUGS (4)
  1. LOTENSIN [Concomitant]
     Active Substance: BENAZEPRIL HYDROCHLORIDE
     Indication: HYPERTENSION
     Dosage: YEARS
     Route: 065
  2. ROBAXIN [Concomitant]
     Active Substance: METHOCARBAMOL
     Indication: PRODUCT USED FOR UNKNOWN INDICATION
     Dosage: 1-2 A DAY, YEARS
     Route: 065
  3. WOMENS ROGAINE [Suspect]
     Active Substance: MINOXIDIL
     Route: 061
  4. WOMENS ROGAINE [Suspect]
     Active Substance: MINOXIDIL
     Indication: ALOPECIA
     Dosage: DROPPER FULL
     Route: 061
     Dates: start: 20160621, end: 20170730

REACTIONS (5)
  - Pain of skin [Recovered/Resolved]
  - Hyperaesthesia [Recovering/Resolving]
  - Drug effect incomplete [Unknown]
  - Head discomfort [Unknown]
  - Overdose [Unknown]

NARRATIVE: CASE EVENT DATE: 201606
